FAERS Safety Report 6249330-1 (Version None)
Quarter: 2009Q2

REPORT INFORMATION
  Report Type: 
  Country: None (occurrence: None)
  Receive Date: 20090625
  Receipt Date: 20090625
  Transmission Date: 20091009
  Serious: Yes (Other)
  Sender: FDA-Public Use
  Company Number: None

PATIENT
  Age: 43 Year
  Sex: Female
  Weight: 102.0593 kg

DRUGS (1)
  1. ZICAM 2X MATRIXX INITIATIVES, INC. [Suspect]
     Indication: NASOPHARYNGITIS
     Dosage: 1 SWAB EVERY 4 HOURS NASAL
     Route: 045
     Dates: start: 20070520, end: 20070521

REACTIONS (4)
  - AGEUSIA [None]
  - ANOSMIA [None]
  - DYSGEUSIA [None]
  - PAROSMIA [None]
